FAERS Safety Report 8206816-8 (Version None)
Quarter: 2012Q1

REPORT INFORMATION
  Report Type: 
  Country: None (occurrence: None)
  Receive Date: 20120308
  Receipt Date: 20120228
  Transmission Date: 20120608
  Serious: Yes (Other)
  Sender: FDA-Public Use
  Company Number: 2012031427

PATIENT
  Sex: Female

DRUGS (3)
  1. CINRYZE [Suspect]
     Indication: HEREDITARY ANGIOEDEMA
     Dosage: (1000 UNITS (1500 EVERY THREE DAYS) (1500 UNITS EVERY THREE DAYS)
     Dates: start: 20120218
  2. CINRYZE [Suspect]
     Indication: HEREDITARY ANGIOEDEMA
     Dosage: (1000 UNITS (1500 EVERY THREE DAYS) (1500 UNITS EVERY THREE DAYS)
     Dates: start: 20120110
  3. BERINERT [Suspect]
     Indication: HEREDITARY ANGIOEDEMA
     Dosage: EVERY THREE DAYS)
     Dates: start: 20100204

REACTIONS (20)
  - SINUS HEADACHE [None]
  - INFUSION RELATED REACTION [None]
  - YAWNING [None]
  - LOSS OF CONSCIOUSNESS [None]
  - HYPERVENTILATION [None]
  - CHEST PAIN [None]
  - TREMOR [None]
  - DYSPNOEA [None]
  - MEDICAL DEVICE PAIN [None]
  - FEELING ABNORMAL [None]
  - DISORIENTATION [None]
  - INCONTINENCE [None]
  - CHEST DISCOMFORT [None]
  - CONVULSION [None]
  - DIZZINESS [None]
  - MUSCULOSKELETAL DISORDER [None]
  - DYSPHONIA [None]
  - FALL [None]
  - HEADACHE [None]
  - ASTHENIA [None]
